FAERS Safety Report 10584444 (Version 1)
Quarter: 2014Q4

REPORT INFORMATION
  Report Type: Spontaneous
  Country: US (occurrence: None)
  Receive Date: 20141113
  Receipt Date: 20141113
  Transmission Date: 20150529
  Serious: Yes (Death, Hospitalization)
  Sender: FDA-Public Use
  Company Number: None

PATIENT
  Age: 86 Year
  Sex: Male
  Weight: 74.84 kg

DRUGS (1)
  1. AMIODARONE [Suspect]
     Active Substance: AMIODARONE
     Indication: VENTRICULAR TACHYCARDIA
     Dosage: 400 MG TWICE DAILY

REACTIONS (9)
  - Pneumonia [None]
  - Oxygen saturation abnormal [None]
  - Ventricular tachycardia [None]
  - Dysstasia [None]
  - Pulmonary fibrosis [None]
  - Pulmonary toxicity [None]
  - Hypotension [None]
  - Tremor [None]
  - Delirium [None]

NARRATIVE: CASE EVENT DATE: 20141002
